FAERS Safety Report 18251398 (Version 8)
Quarter: 2022Q2

REPORT INFORMATION
  Report Type: Report from Study
  Country: US (occurrence: US)
  Receive Date: 20200910
  Receipt Date: 20220504
  Transmission Date: 20220721
  Serious: Yes (Death, Hospitalization)
  Sender: FDA-Public Use
  Company Number: NVSC2020US247480

PATIENT
  Age: 83 Year
  Sex: Male
  Weight: 62.585 kg

DRUGS (5)
  1. TREPROSTINIL [Suspect]
     Active Substance: TREPROSTINIL
     Indication: Pulmonary arterial hypertension
     Dosage: UNK (20 NG/KG/MIN CONTINUOUS)
     Route: 042
     Dates: start: 20200902
  2. TREPROSTINIL [Suspect]
     Active Substance: TREPROSTINIL
     Dosage: UNK (20 NG/KG/MIN)
     Route: 042
  3. TREPROSTINIL [Suspect]
     Active Substance: TREPROSTINIL
     Dosage: UNK
     Route: 042
  4. TREPROSTINIL [Suspect]
     Active Substance: TREPROSTINIL
     Dosage: 31 NG/KG/MIN, CONT
     Route: 042
  5. SILDENAFIL CITRATE [Concomitant]
     Active Substance: SILDENAFIL CITRATE
     Indication: Product used for unknown indication
     Dosage: UNK
     Route: 065

REACTIONS (9)
  - Death [Fatal]
  - Respiratory failure [Unknown]
  - Hypoxia [Unknown]
  - Dyspnoea [Unknown]
  - Decreased appetite [Unknown]
  - Oxygen consumption decreased [Unknown]
  - Headache [Unknown]
  - Nausea [Unknown]
  - Oedema [Unknown]

NARRATIVE: CASE EVENT DATE: 20220429
